FAERS Safety Report 9422346 (Version 2)
Quarter: 2013Q3

REPORT INFORMATION
  Report Type: Spontaneous
  Country: FR (occurrence: None)
  Receive Date: 20130722
  Receipt Date: 20130919
  Transmission Date: 20140515
  Serious: Yes (Hospitalization)
  Sender: FDA-Public Use
  Company Number: GAM-206-13-FR

PATIENT
  Age: 63 Year
  Sex: Female

DRUGS (8)
  1. ROVALCYTE [Suspect]
     Indication: CYTOMEGALOVIRUS INFECTION
     Dosage: 3 IN 1 D
     Dates: start: 20130529, end: 20131106
  2. CELLCEPT (MYCOPHENOLATE MOFETIL) TABLET [Suspect]
     Indication: RENAL TRANSPLANT
     Route: 048
     Dates: start: 2010, end: 20131106
  3. NEORAL (CICLOSPORIN) [Suspect]
     Indication: RENAL TRANSPLANT
     Route: 048
     Dates: start: 2010
  4. SOLUPRED (PREDNISOLONE) [Suspect]
     Indication: RENAL TRANSPLANT
     Route: 048
     Dates: start: 2010
  5. LASIX (FUROSEMIDE) [Suspect]
     Indication: RENAL FAILURE CHRONIC
     Route: 048
     Dates: start: 2010
  6. AMLOR [Suspect]
     Route: 048
     Dates: start: 201202, end: 20131206
  7. OCTAGAM [Suspect]
     Indication: CYTOMEGALOVIRUS INFECTION
     Dosage: 3X PER WEEK
     Route: 042
     Dates: start: 20130515, end: 20131106
  8. GANCICLOVIR [Concomitant]

REACTIONS (3)
  - Pancytopenia [None]
  - Pyrexia [None]
  - Toxicity to various agents [None]
